FAERS Safety Report 7932813-3 (Version None)
Quarter: 2011Q4

REPORT INFORMATION
  Report Type: 
  Country: None (occurrence: None)
  Receive Date: 20111122
  Receipt Date: 20111117
  Transmission Date: 20120403
  Serious: Yes (Hospitalization, Other)
  Sender: FDA-Public Use
  Company Number: DE-PFIZER INC-2011281640

PATIENT
  Age: 53 Year
  Sex: Male
  Weight: 78 kg

DRUGS (10)
  1. TELMISARTAN [Concomitant]
     Indication: HYPERTENSION
     Dosage: 80 MG PER DAY
     Route: 048
     Dates: start: 20111011
  2. PANKREATIN [Concomitant]
     Indication: CARCINOID SYNDROME
     Dosage: 120000 IU PER DAY
     Route: 048
     Dates: start: 20101001
  3. SCOPOLAMINE [Concomitant]
     Indication: ABDOMINAL PAIN UPPER
     Dosage: 160 MG PER DAY
     Route: 048
     Dates: start: 20110601
  4. REVATIO [Suspect]
     Indication: PULMONARY HYPERTENSION
     Dosage: 60 MG PER DAY
     Route: 048
     Dates: start: 20111011, end: 20111027
  5. SANDOSTATIN [Suspect]
     Indication: CARCINOID SYNDROME
     Dosage: 30 MG, MONTHLY
     Route: 058
     Dates: start: 20101001
  6. LOPERAMIDE [Concomitant]
     Indication: CARCINOID SYNDROME
     Dosage: 12 MG PER DAY
     Route: 048
     Dates: start: 20101001
  7. METAMIZOLE [Concomitant]
     Indication: ABDOMINAL PAIN UPPER
     Dosage: 4000 MG PER DAY
     Route: 048
     Dates: start: 20110601
  8. HYDROCHLOROTHIAZIDE [Concomitant]
     Indication: HYPERTENSION
     Dosage: 6.25 MG PER DAY
     Route: 048
     Dates: start: 20111011
  9. URSODEOXYCHOLIC ACID [Concomitant]
     Indication: CHOLELITHIASIS
     Dosage: 1000 MG PER DAY
     Route: 048
     Dates: start: 20111007
  10. OMEPRAZOLE [Concomitant]
     Indication: DYSPEPSIA
     Dosage: 20 MG PER DAY
     Route: 048
     Dates: start: 20080101

REACTIONS (5)
  - DELIRIUM [None]
  - AGITATION [None]
  - POSTERIOR REVERSIBLE ENCEPHALOPATHY SYNDROME [None]
  - SCINTILLATING SCOTOMA [None]
  - HEADACHE [None]
